FAERS Safety Report 4752396-9 (Version None)
Quarter: 2005Q3

REPORT INFORMATION
  Report Type: 
  Country: None (occurrence: None)
  Receive Date: 20050823
  Receipt Date: 20050810
  Transmission Date: 20060218
  Serious: Yes (Hospitalization)
  Sender: FDA-Public Use
  Company Number: 2005113503

PATIENT
  Sex: Female

DRUGS (3)
  1. CLINDAMYCIN HCL [Suspect]
     Indication: RASH
     Dosage: INTRAVENOUS
     Route: 042
  2. ZOVIRAX [Suspect]
     Indication: RASH
     Dosage: INTRAVENOUS
     Route: 042
  3. CORTISONE ACETATE [Concomitant]
     Indication: ILL-DEFINED DISORDER

REACTIONS (4)
  - ERYTHEMA MULTIFORME [None]
  - HERPES SIMPLEX [None]
  - MUSCULOSKELETAL STIFFNESS [None]
  - OEDEMA PERIPHERAL [None]
